FAERS Safety Report 4308122-0 (Version None)
Quarter: 2004Q1

REPORT INFORMATION
  Report Type: 
  Country: None (occurrence: None)
  Receive Date: 20040301
  Receipt Date: 20030506
  Transmission Date: 20041129
  Serious: No
  Sender: FDA-Public Use
  Company Number: US-BRISTOL-MYERS SQUIBB COMPANY-12289906

PATIENT
  Age: 50 Year
  Sex: Male
  Weight: 136 kg

DRUGS (4)
  1. GLUCOPHAGE [Suspect]
     Indication: INSULIN RESISTANCE
     Dates: start: 20030429
  2. PRINZIDE [Concomitant]
  3. ZYRTEC [Concomitant]
  4. ALLERGY SHOTS [Concomitant]
     Indication: MULTIPLE ALLERGIES
     Route: 058

REACTIONS (1)
  - DIARRHOEA [None]
